FAERS Safety Report 7394492-6 (Version None)
Quarter: 2011Q2

REPORT INFORMATION
  Report Type: 
  Country: None (occurrence: None)
  Receive Date: 20110405
  Receipt Date: 20110325
  Transmission Date: 20111010
  Serious: Yes (Hospitalization)
  Sender: FDA-Public Use
  Company Number: PHHY2011DE25307

PATIENT
  Age: 82 Year
  Sex: Female

DRUGS (3)
  1. EXELON [Suspect]
     Indication: DEMENTIA
     Dosage: 4.6 MG/ 24 HRS
     Route: 062
     Dates: start: 20101201, end: 20110201
  2. DOPADURA RETARD [Concomitant]
  3. EXELON [Suspect]
     Dosage: 9.5 MG/ 24 HRS
     Route: 062
     Dates: start: 20110201

REACTIONS (2)
  - PSYCHOTIC DISORDER [None]
  - CONFUSIONAL STATE [None]
